FAERS Safety Report 21108990 (Version 2)
Quarter: 2022Q3

REPORT INFORMATION
  Report Type: Report from Study
  Country: US (occurrence: None)
  Receive Date: 20220721
  Receipt Date: 20220728
  Transmission Date: 20221027
  Serious: Yes (Other)
  Sender: FDA-Public Use
  Company Number: 2022A260891

PATIENT
  Age: 74 Year

DRUGS (1)
  1. LYNPARZA [Suspect]
     Active Substance: OLAPARIB
     Indication: Prostate cancer
     Route: 048

REACTIONS (3)
  - Metastases to bone [Recovering/Resolving]
  - Malignant neoplasm progression [Recovering/Resolving]
  - Drug ineffective [Recovering/Resolving]
